FAERS Safety Report 23431246 (Version 1)
Quarter: 2024Q1

REPORT INFORMATION
  Report Type: Spontaneous
  Country: US (occurrence: US)
  Receive Date: 20240123
  Receipt Date: 20240123
  Transmission Date: 20240409
  Serious: No
  Sender: FDA-Public Use
  Company Number: US-BRISTOL-MYERS SQUIBB COMPANY-2024-010389

PATIENT
  Age: 66 Year
  Sex: Female
  Weight: 113.4 kg

DRUGS (1)
  1. ELIQUIS [Suspect]
     Active Substance: APIXABAN
     Indication: Deep vein thrombosis
     Route: 048
     Dates: start: 202301

REACTIONS (2)
  - Pain in extremity [Unknown]
  - Paranoia [Unknown]

NARRATIVE: CASE EVENT DATE: 20230117
